FAERS Safety Report 20326059 (Version 1)
Quarter: 2022Q1

REPORT INFORMATION
  Report Type: Report from Study
  Country: BR (occurrence: BR)
  Receive Date: 20220112
  Receipt Date: 20220112
  Transmission Date: 20220423
  Serious: Yes (Death)
  Sender: FDA-Public Use
  Company Number: BR-JNJFOC-20220114570

PATIENT
  Sex: Female
  Weight: 80 kg

DRUGS (1)
  1. REMICADE [Suspect]
     Active Substance: INFLIXIMAB
     Indication: Psoriatic arthropathy
     Dosage: 4 VIALS AMPOULES
     Route: 042

REACTIONS (6)
  - Sepsis [Fatal]
  - Urinary tract infection [Fatal]
  - Myocardial infarction [Fatal]
  - Renal disorder [Fatal]
  - Off label use [Unknown]
  - Product use issue [Unknown]
